FAERS Safety Report 14179447 (Version 2)
Quarter: 2017Q4

REPORT INFORMATION
  Report Type: Spontaneous
  Country: US (occurrence: US)
  Receive Date: 20171110
  Receipt Date: 20171129
  Transmission Date: 20180321
  Serious: Yes (Hospitalization)
  Sender: FDA-Public Use
  Company Number: US-MAYNE PHARMA-2017MYN002063

PATIENT

DRUGS (6)
  1. ZOLPIDEM [Concomitant]
     Active Substance: ZOLPIDEM\ZOLPIDEM TARTRATE
  2. VENLAFAXINE XR [Concomitant]
     Active Substance: VENLAFAXINE HYDROCHLORIDE
  3. FLUOXETINE [Concomitant]
     Active Substance: FLUOXETINE HYDROCHLORIDE
  4. QUETIAPINE. [Concomitant]
     Active Substance: QUETIAPINE
  5. CLOZAPINE. [Suspect]
     Active Substance: CLOZAPINE
     Indication: SCHIZOAFFECTIVE DISORDER
     Dosage: 275 MG, NIGHTLY
  6. ARIPIPRAZOLE. [Concomitant]
     Active Substance: ARIPIPRAZOLE

REACTIONS (3)
  - Hallucination [Recovering/Resolving]
  - Suicidal ideation [Recovering/Resolving]
  - Hallucination, auditory [Recovering/Resolving]
